FAERS Safety Report 7027983-8 (Version None)
Quarter: 2010Q4

REPORT INFORMATION
  Report Type: 
  Country: None (occurrence: None)
  Receive Date: 20101005
  Receipt Date: 20100927
  Transmission Date: 20110411
  Serious: Yes (Life-Threatening, Hospitalization, Disabling, Other)
  Sender: FDA-Public Use
  Company Number: RU-ACTELION-A-CH2010-39353

PATIENT
  Sex: Female
  Weight: 60 kg

DRUGS (4)
  1. TRACLEER [Suspect]
     Indication: PULMONARY ARTERIAL HYPERTENSION
     Dosage: 62.5 MG, BID
     Route: 048
     Dates: start: 20091101, end: 20091201
  2. TRACLEER [Suspect]
     Dosage: 125 MG, BID
     Route: 048
     Dates: start: 20091201, end: 20100201
  3. PANANGIN [Concomitant]
     Dosage: UNK
     Dates: start: 20091101
  4. ASPIRIN [Concomitant]
     Dosage: UNK
     Dates: start: 20091101

REACTIONS (6)
  - ARRHYTHMIA [None]
  - DISEASE PROGRESSION [None]
  - DRUG INEFFECTIVE [None]
  - DYSPNOEA [None]
  - GASTRITIS [None]
  - PULMONARY ARTERIAL HYPERTENSION [None]
